FAERS Safety Report 4822848-1 (Version None)
Quarter: 2005Q4

REPORT INFORMATION
  Report Type: 
  Country: None (occurrence: None)
  Receive Date: 20051104
  Receipt Date: 20051026
  Transmission Date: 20060501
  Serious: Yes (Disabling, Other)
  Sender: FDA-Public Use
  Company Number: 2005147120

PATIENT
  Sex: Female

DRUGS (1)
  1. NORVASC [Suspect]
     Indication: ILL-DEFINED DISORDER

REACTIONS (5)
  - COLON CANCER [None]
  - DISABILITY [None]
  - HERPES ZOSTER [None]
  - LIVER DISORDER [None]
  - RENAL DISORDER [None]
